FAERS Safety Report 9960798 (Version 1)
Quarter: 2014Q1

REPORT INFORMATION
  Report Type: Report from Study
  Country: US (occurrence: US)
  Receive Date: 20140305
  Receipt Date: 20140305
  Transmission Date: 20141002
  Serious: No
  Sender: FDA-Public Use
  Company Number: US-ABBVIE-13P-163-1108363-00

PATIENT
  Age: 30 Year
  Sex: Male

DRUGS (3)
  1. HUMIRA [Suspect]
     Indication: COLITIS ULCERATIVE
     Dates: start: 20130405
  2. HUMIRA [Suspect]
     Dates: end: 201304
  3. APRISO [Concomitant]
     Indication: COLITIS ULCERATIVE
     Dosage: 575MGX4 A DAY

REACTIONS (2)
  - Abdominal pain upper [Recovered/Resolved]
  - Vomiting [Recovered/Resolved]
